FAERS Safety Report 9432639 (Version 2)
Quarter: 2013Q3

REPORT INFORMATION
  Report Type: Spontaneous
  Country: IT (occurrence: IT)
  Receive Date: 20130731
  Receipt Date: 20130925
  Transmission Date: 20140515
  Serious: Yes (Death)
  Sender: FDA-Public Use
  Company Number: IT-TEVA-421077ISR

PATIENT
  Age: 65 Year
  Sex: Female
  Weight: 80 kg

DRUGS (10)
  1. CIPROFLOXACINA RATIOPHARM 500 MG [Suspect]
     Indication: CHRONIC OBSTRUCTIVE PULMONARY DISEASE
     Dosage: 500 MILLIGRAM DAILY;
     Route: 048
     Dates: start: 20130131, end: 20130201
  2. CARBOLITHIUM 300 MG [Interacting]
     Indication: MANIA
     Dosage: 900 MILLIGRAM DAILY;
     Route: 048
     Dates: start: 20090101
  3. CARBOLITHIUM 300 MG [Interacting]
     Indication: BIPOLAR DISORDER
  4. SEROQUEL 25MG [Suspect]
     Indication: MANIA
     Dosage: 50 MILLIGRAM DAILY;
     Route: 048
     Dates: start: 20120906
  5. SEROQUEL 25MG [Suspect]
     Indication: BIPOLAR DISORDER
     Dosage: 25 MILLIGRAM DAILY;
     Route: 048
     Dates: start: 20130201
  6. SYCREST 5 MG [Interacting]
     Indication: MANIA
     Dosage: SUBLINGUAL TABLET
     Route: 048
     Dates: start: 2011
  7. SYCREST 5 MG [Interacting]
     Indication: BIPOLAR DISORDER
     Dosage: 20 MILLIGRAM DAILY; SUBLINGUAL TABLET
     Route: 048
     Dates: start: 20120906, end: 20130201
  8. TAVOR [Concomitant]
     Dosage: 7.5 MILLIGRAM DAILY;
  9. AKINETON [Concomitant]
     Dosage: 4 MILLIGRAM DAILY;
  10. FLUNOX [Concomitant]
     Dosage: 30 MILLIGRAM DAILY;

REACTIONS (3)
  - Respiratory tract infection bacterial [Fatal]
  - Electrocardiogram QT prolonged [Fatal]
  - Drug interaction [Fatal]
